FAERS Safety Report 12686478 (Version 1)
Quarter: 2016Q3

REPORT INFORMATION
  Report Type: Spontaneous
  Country: US (occurrence: US)
  Receive Date: 20160825
  Receipt Date: 20160825
  Transmission Date: 20161109
  Serious: No
  Sender: FDA-Public Use
  Company Number: US-BAYER-2016-165974

PATIENT
  Age: 10 Year

DRUGS (1)
  1. MIRALAX [Suspect]
     Active Substance: POLYETHYLENE GLYCOL 3350
     Indication: CONSTIPATION
     Dosage: THE GRANDCHILD TOOK 3/4 OF A DOSE DAILY
     Route: 048
     Dates: start: 201602

REACTIONS (1)
  - Product use issue [None]

NARRATIVE: CASE EVENT DATE: 201602
